FAERS Safety Report 6024576-6 (Version None)
Quarter: 2008Q4

REPORT INFORMATION
  Report Type: 
  Country: None (occurrence: None)
  Receive Date: 20081231
  Receipt Date: 20081104
  Transmission Date: 20090506
  Serious: No
  Sender: FDA-Public Use
  Company Number: US-BRISTOL-MYERS SQUIBB COMPANY-14394332

PATIENT
  Age: 55 Year
  Sex: Female
  Weight: 75 kg

DRUGS (7)
  1. ORENCIA [Suspect]
     Indication: RHEUMATOID ARTHRITIS
     Dosage: THERAPY 2ND DOSE= 01-OCT-2008
     Dates: start: 20080910
  2. METHOTREXATE [Concomitant]
  3. FOLGARD [Concomitant]
  4. ASPIRIN [Concomitant]
  5. CITRACAL + D [Concomitant]
  6. ASCORBIC ACID [Concomitant]
  7. CENTRUM SILVER [Concomitant]

REACTIONS (1)
  - SINUSITIS [None]
